FAERS Safety Report 16665022 (Version 1)
Quarter: 2019Q3

REPORT INFORMATION
  Report Type: Spontaneous
  Country: US (occurrence: US)
  Receive Date: 20190803
  Receipt Date: 20190803
  Transmission Date: 20191004
  Serious: Yes (Other)
  Sender: FDA-Public Use
  Company Number: US-ACCORD-070851

PATIENT
  Age: 45 Year
  Sex: Female
  Weight: 99.34 kg

DRUGS (9)
  1. EMEND [Concomitant]
     Active Substance: APREPITANT
  2. ADRIAMYCIN [Suspect]
     Active Substance: DOXORUBICIN HYDROCHLORIDE
     Indication: BREAST CANCER
     Dosage: NUMBER OF CYCLES: 06, APPROXIMATELY EVERY 3 TO 6 WEEKS
     Dates: start: 20151007, end: 20160310
  3. DECADRON [Concomitant]
     Active Substance: DEXAMETHASONE
  4. DOCETAXEL ACCORD [Suspect]
     Active Substance: DOCETAXEL
     Indication: BREAST CANCER
     Dosage: NU. OF CYCLES: 06, APPROX EVERY 3 TO 6 WEEKS
     Dates: start: 20151007, end: 20160310
  5. NEOSAR [Suspect]
     Active Substance: CYCLOPHOSPHAMIDE
     Indication: BREAST CANCER
     Dosage: NUMBER OF CYCLES: 06, APPROXIMATELY EVERY 3 TO 6 WEEKS
     Dates: start: 20151007, end: 20160310
  6. NEULASTA [Concomitant]
     Active Substance: PEGFILGRASTIM
  7. ZOFRAN [Concomitant]
     Active Substance: ONDANSETRON HYDROCHLORIDE
  8. BENADRYL [Concomitant]
     Active Substance: DIPHENHYDRAMINE HYDROCHLORIDE
  9. PEPCID [Concomitant]
     Active Substance: FAMOTIDINE

REACTIONS (1)
  - Alopecia [Not Recovered/Not Resolved]

NARRATIVE: CASE EVENT DATE: 20160911
